FAERS Safety Report 5818312-3 (Version None)
Quarter: 2008Q3

REPORT INFORMATION
  Report Type: 
  Country: None (occurrence: None)
  Receive Date: 20080722
  Receipt Date: 20080711
  Transmission Date: 20090109
  Serious: Yes (Life-Threatening, Other)
  Sender: FDA-Public Use
  Company Number: CN-PFIZER INC-2008054061

PATIENT
  Age: 70 Year
  Sex: Male

DRUGS (4)
  1. CARDURA [Suspect]
     Indication: BENIGN PROSTATIC HYPERPLASIA
     Route: 048
     Dates: start: 20080301, end: 20080301
  2. HYDROCHLOROTHIAZIDE [Suspect]
     Route: 048
  3. SPIRONOLACTONE [Suspect]
     Route: 048
  4. PROSCAR [Concomitant]
     Indication: BENIGN PROSTATIC HYPERPLASIA
     Route: 048

REACTIONS (2)
  - BLOOD PRESSURE DECREASED [None]
  - SHOCK [None]
